FAERS Safety Report 6261191-3 (Version None)
Quarter: 2009Q3

REPORT INFORMATION
  Report Type: 
  Country: None (occurrence: None)
  Receive Date: 20090709
  Receipt Date: 20080721
  Transmission Date: 20100115
  Serious: No
  Sender: FDA-Public Use
  Company Number: US-KINGPHARMUSA00001-K200800880

PATIENT
  Sex: Female

DRUGS (10)
  1. LEVOXYL [Suspect]
     Indication: THYROIDECTOMY
     Dosage: 300 MCG, QD
     Route: 048
     Dates: start: 20060101
  2. ADVAIR HFA [Concomitant]
     Indication: ASTHMA
  3. ALBUTEROL [Concomitant]
     Indication: ASTHMA
  4. ALLEGRA [Concomitant]
     Indication: ASTHMA
     Dosage: 180 MG, QD
     Route: 048
  5. SUDAFED  /00070002/ [Concomitant]
     Dosage: UNK, PRN
  6. CALCITROL /00508501/ [Concomitant]
     Indication: HYPOCALCAEMIA
  7. XANAX [Concomitant]
     Dosage: .25 UNK, PRN
  8. KADIAN [Concomitant]
     Dosage: UNK, BID
  9. MORPHINE SULFATE [Concomitant]
     Dosage: UNK, PRN
  10. FLEXERIL [Concomitant]
     Indication: FALL
     Dosage: UNK, UNK

REACTIONS (4)
  - COGNITIVE DISORDER [None]
  - COMMUNICATION DISORDER [None]
  - DISTURBANCE IN ATTENTION [None]
  - MEMORY IMPAIRMENT [None]
